FAERS Safety Report 9217981 (Version 1)
Quarter: 2013Q2

REPORT INFORMATION
  Report Type: Spontaneous
  Country: MX (occurrence: MX)
  Receive Date: 20130408
  Receipt Date: 20130408
  Transmission Date: 20140414
  Serious: Yes (Other)
  Sender: FDA-Public Use
  Company Number: PHHY2013MX033564

PATIENT
  Age: 73 Year
  Sex: Male

DRUGS (4)
  1. CO-DIOVAN [Suspect]
     Indication: HYPERTENSION
     Dosage: 1 DF (VALSARTAN 160MG AND HYDROCHLOROTHIAZIDE 12.5MG)  DAILY
     Route: 048
     Dates: start: 200301
  2. CO-DIOVAN [Suspect]
     Dosage: 2 DF (VALSARTAN 160MG AND HYDROCHLOROTHIAZIDE 12.5MG)  DAILY
     Route: 048
     Dates: start: 201211
  3. PROPAFENONE [Concomitant]
     Dosage: 1 DF, DAILY
     Dates: start: 200803
  4. SELOKEN ZOC [Concomitant]
     Dosage: 1 DF, DAILY
     Dates: start: 201212

REACTIONS (7)
  - Cerebral infarction [Recovered/Resolved]
  - Carotid artery occlusion [Recovered/Resolved]
  - Thyroid disorder [Recovered/Resolved]
  - Memory impairment [Recovered/Resolved]
  - Blood cholesterol abnormal [Recovered/Resolved]
  - Tachycardia [Recovered/Resolved]
  - Arrhythmia [Recovered/Resolved]
